FAERS Safety Report 23074299 (Version 1)
Quarter: 2023Q4

REPORT INFORMATION
  Report Type: Spontaneous
  Country: US (occurrence: None)
  Receive Date: 20231016
  Receipt Date: 20231016
  Transmission Date: 20240109
  Serious: Yes (Life-Threatening)
  Sender: FDA-Public Use
  Company Number: None

PATIENT
  Age: 73 Year
  Sex: Female
  Weight: 67.5 kg

DRUGS (16)
  1. PAXLOVID [Suspect]
     Active Substance: NIRMATRELVIR\RITONAVIR
     Indication: SARS-CoV-2 test positive
     Route: 048
  2. LISINOPRIL [Concomitant]
     Active Substance: LISINOPRIL
  3. PRAVASTATIN [Concomitant]
     Active Substance: PRAVASTATIN
  4. PAXLOVID [Concomitant]
     Active Substance: NIRMATRELVIR\RITONAVIR
  5. Ezetimibe10mg [Concomitant]
  6. DENOSUMAB [Concomitant]
     Active Substance: DENOSUMAB
  7. ASPIRIN [Concomitant]
     Active Substance: ASPIRIN
  8. VITAMINS [Concomitant]
     Active Substance: VITAMINS
  9. VITAMIN D [Concomitant]
     Active Substance: VITAMIN D NOS
  10. COENZYME Q10 [Concomitant]
     Active Substance: DIETARY SUPPLEMENT\UBIDECARENONE
  11. ESTRADIOL [Concomitant]
     Active Substance: ESTRADIOL
  12. FISH OIL [Concomitant]
     Active Substance: FISH OIL
  13. CLARITIN [Concomitant]
     Active Substance: LORATADINE
  14. LUTEIN [Concomitant]
     Active Substance: LUTEIN
  15. MAGNESIUM [Concomitant]
     Active Substance: MAGNESIUM
  16. ZINC [Concomitant]
     Active Substance: ZINC

REACTIONS (4)
  - Dysphagia [None]
  - Throat tightness [None]
  - Dysphonia [None]
  - Hypersensitivity [None]

NARRATIVE: CASE EVENT DATE: 20230823
